FAERS Safety Report 9453636 (Version 1)
Quarter: 2013Q1

REPORT INFORMATION
  Report Type: Not Available
  Country: US (occurrence: US)
  Receive Date: 20120321
  Receipt Date: 20120321
  Transmission Date: 20140127
  Serious: Yes (Other)
  Sender: FDA-Public Use
  Company Number: US-LUNDBECK-DKLU1075299

PATIENT
  Sex: Male

DRUGS (2)
  1. SABRIL     (TABLET) [Suspect]
     Indication: COMPLEX PARTIAL SEIZURES
     Route: 048
     Dates: start: 201112
  2. SABRIL     (TABLET) [Suspect]
     Indication: CONVULSION

REACTIONS (3)
  - Convulsion [Unknown]
  - Hiccups [Unknown]
  - Device interaction [Unknown]
